FAERS Safety Report 17656186 (Version 1)
Quarter: 2020Q2

REPORT INFORMATION
  Report Type: Spontaneous
  Country: US (occurrence: US)
  Receive Date: 20200410
  Receipt Date: 20200410
  Transmission Date: 20200713
  Serious: No
  Sender: FDA-Public Use
  Company Number: US-PERRIGO-20US002803

PATIENT
  Age: 27 Year
  Sex: Female
  Weight: 73.47 kg

DRUGS (2)
  1. MIDOL LONG LASTING RELIEF [Suspect]
     Active Substance: ACETAMINOPHEN
     Indication: PAIN
     Dosage: 1300 MG, TWICE IN 3 HOURS
     Route: 048
     Dates: start: 20200216, end: 20200216
  2. ADVIL [Concomitant]
     Active Substance: IBUPROFEN
     Indication: PAIN
     Dosage: UNKNOWN, UNKNOWN
     Route: 048
     Dates: start: 20200216

REACTIONS (2)
  - Drug ineffective [Unknown]
  - Inappropriate schedule of product administration [Recovered/Resolved]

NARRATIVE: CASE EVENT DATE: 20200216
